FAERS Safety Report 4647509-3 (Version None)
Quarter: 2005Q2

REPORT INFORMATION
  Report Type: 
  Country: None (occurrence: None)
  Receive Date: 20050426
  Receipt Date: 20050411
  Transmission Date: 20051028
  Serious: Yes (Other)
  Sender: FDA-Public Use
  Company Number: 2005BI007343

PATIENT
  Age: 31 Year
  Sex: Female

DRUGS (3)
  1. AVONEX [Suspect]
     Indication: MULTIPLE SCLEROSIS
     Dosage: 30 UG; QW; IM
     Route: 030
     Dates: start: 20050117, end: 20050201
  2. PARACETAMOL [Concomitant]
  3. NEURONTIN [Concomitant]

REACTIONS (2)
  - HEPATITIS [None]
  - JAUNDICE CHOLESTATIC [None]
